FAERS Safety Report 11649765 (Version 1)
Quarter: 2015Q4

REPORT INFORMATION
  Report Type: Spontaneous
  Country: US (occurrence: US)
  Receive Date: 20151021
  Receipt Date: 20151021
  Transmission Date: 20160304
  Serious: Yes (Other)
  Sender: FDA-Public Use
  Company Number: US-PRESTIGE BRANDS -1043245

PATIENT
  Age: 71 Year
  Sex: Male

DRUGS (3)
  1. METFORMIN [Concomitant]
     Active Substance: METFORMIN HYDROCHLORIDE
  2. DEBROX [Suspect]
     Active Substance: CARBAMIDE PEROXIDE
     Indication: CERUMEN REMOVAL
     Route: 001
     Dates: start: 20151006, end: 20151006
  3. LISINOPRIL. [Concomitant]
     Active Substance: LISINOPRIL

REACTIONS (5)
  - Ear pain [Recovered/Resolved]
  - Ear swelling [Not Recovered/Not Resolved]
  - Abscess drainage [Unknown]
  - Hypoacusis [Not Recovered/Not Resolved]
  - Pruritus [Unknown]
